FAERS Safety Report 13166565 (Version 1)
Quarter: 2017Q1

REPORT INFORMATION
  Report Type: Spontaneous
  Country: None (occurrence: US)
  Receive Date: 20170127
  Receipt Date: 20170127
  Transmission Date: 20170428
  Serious: No
  Sender: FDA-Public Use
  Company Number: None

PATIENT
  Sex: Female

DRUGS (1)
  1. BOTOX [Suspect]
     Active Substance: ONABOTULINUMTOXINA
     Indication: MIGRAINE
     Dosage: 200UNITS EVERY 90 DAYS TO INTRAMUSCULAR
     Route: 030
     Dates: start: 20161121

REACTIONS (3)
  - Trigeminal neuralgia [None]
  - Neck pain [None]
  - Dysphagia [None]
